FAERS Safety Report 14333982 (Version 1)
Quarter: 2017Q4

REPORT INFORMATION
  Report Type: Spontaneous
  Country: SA (occurrence: SA)
  Receive Date: 20171228
  Receipt Date: 20171228
  Transmission Date: 20180321
  Serious: Yes (Death, Other)
  Sender: FDA-Public Use
  Company Number: SA-JUBILANT CADISTA PHARMACEUTICALS-2017JUB00440

PATIENT
  Age: 52 Year
  Sex: Male

DRUGS (1)
  1. CITALOPRAM [Suspect]
     Active Substance: CITALOPRAM HYDROBROMIDE
     Indication: DEPRESSION
     Dosage: ^SMALL DOSE^
     Route: 065

REACTIONS (4)
  - Acute kidney injury [Unknown]
  - Hyperkalaemia [Unknown]
  - Serotonin syndrome [Fatal]
  - Rhabdomyolysis [Unknown]
